FAERS Safety Report 18853842 (Version 1)
Quarter: 2021Q1

REPORT INFORMATION
  Report Type: Spontaneous
  Country: IT (occurrence: IT)
  Receive Date: 20210205
  Receipt Date: 20210205
  Transmission Date: 20210420
  Serious: Yes (Hospitalization)
  Sender: FDA-Public Use
  Company Number: IT-MYLANLABS-2021M1006678

PATIENT
  Age: 17 Year
  Sex: Female

DRUGS (2)
  1. CLOZAPINE. [Suspect]
     Active Substance: CLOZAPINE
     Indication: PRODUCT USED FOR UNKNOWN INDICATION
     Dosage: 700 MILLIGRAM, ONCE
     Route: 048
     Dates: start: 20201209, end: 20201209
  2. LORAZEPAM. [Suspect]
     Active Substance: LORAZEPAM
     Indication: PRODUCT USED FOR UNKNOWN INDICATION
     Dosage: 5 MILLIGRAM, ONCE
     Route: 048
     Dates: start: 20201209, end: 20201209

REACTIONS (4)
  - Overdose [Unknown]
  - Suicide attempt [Unknown]
  - Sopor [Unknown]
  - Hypertension [Unknown]

NARRATIVE: CASE EVENT DATE: 20201209
